FAERS Safety Report 24748386 (Version 1)
Quarter: 2024Q4

REPORT INFORMATION
  Report Type: Spontaneous
  Country: US (occurrence: US)
  Receive Date: 20241218
  Receipt Date: 20241218
  Transmission Date: 20250114
  Serious: No
  Sender: CALLIDITAS THERAPEUTICS AB
  Company Number: US-Calliditas-2024CAL02906

PATIENT
  Age: 70 Year
  Sex: Male

DRUGS (9)
  1. TARPEYO [Suspect]
     Active Substance: BUDESONIDE
     Indication: IgA nephropathy
     Route: 048
     Dates: start: 20241029
  2. JARDIANCE [Concomitant]
     Active Substance: EMPAGLIFLOZIN
  3. VALSARTAN [Concomitant]
     Active Substance: VALSARTAN
  4. CLONIDINE [Concomitant]
     Active Substance: CLONIDINE
  5. CARVEDILOL [Concomitant]
     Active Substance: CARVEDILOL
  6. FLECAINIDE [Concomitant]
     Active Substance: FLECAINIDE
  7. SYNTHROID [Concomitant]
     Active Substance: LEVOTHYROXINE SODIUM
  8. ALLOPURINOL [Concomitant]
     Active Substance: ALLOPURINOL
  9. FLOMAX [Concomitant]
     Active Substance: TAMSULOSIN HYDROCHLORIDE

REACTIONS (2)
  - Blood pressure increased [Unknown]
  - Weight increased [Unknown]
